FAERS Safety Report 12039351 (Version 1)
Quarter: 2016Q1

REPORT INFORMATION
  Report Type: Spontaneous
  Country: US (occurrence: None)
  Receive Date: 20160205
  Receipt Date: 20160205
  Transmission Date: 20160526
  Serious: Yes (Other)
  Sender: FDA-Public Use
  Company Number: None

PATIENT
  Age: 56 Year
  Weight: 63.5 kg

DRUGS (1)
  1. POLYMIXIN B [Suspect]
     Active Substance: POLYMYXIN B
     Indication: CONJUNCTIVITIS
     Dosage: 1-2 DROPS IN EACH EYE Q3 HRS OPHTHALMIC
     Route: 031

REACTIONS (4)
  - Eye swelling [None]
  - Ocular hyperaemia [None]
  - Hypersensitivity [None]
  - Scab [None]

NARRATIVE: CASE EVENT DATE: 20160201
